FAERS Safety Report 25389675 (Version 2)
Quarter: 2025Q2

REPORT INFORMATION
  Report Type: Spontaneous
  Country: GB (occurrence: GB)
  Receive Date: 20250603
  Receipt Date: 20250605
  Transmission Date: 20250717
  Serious: Yes (Other)
  Sender: NOVARTIS
  Company Number: GB-002147023-NVSC2025GB086715

PATIENT
  Sex: Male

DRUGS (1)
  1. TEGRETOL [Suspect]
     Active Substance: CARBAMAZEPINE
     Indication: Epilepsy
     Dosage: 400 MG, TID, (1200MG DOSE)
     Route: 065

REACTIONS (9)
  - Blood sodium increased [Unknown]
  - Seizure [Unknown]
  - Vitamin D decreased [Unknown]
  - Blood folate decreased [Unknown]
  - Vitamin B12 decreased [Unknown]
  - Renal disorder [Unknown]
  - Blood calcium decreased [Unknown]
  - Anaemia [Unknown]
  - Blood electrolytes abnormal [Unknown]
